FAERS Safety Report 20339146 (Version 1)
Quarter: 2022Q1

REPORT INFORMATION
  Report Type: Spontaneous
  Country: CN (occurrence: CN)
  Receive Date: 20220117
  Receipt Date: 20220117
  Transmission Date: 20220423
  Serious: No
  Sender: FDA-Public Use
  Company Number: CN-HainanShuangchengPharmaceuticalsCoLtd-105889

PATIENT
  Sex: Male

DRUGS (1)
  1. AZITHROMYCIN [Suspect]
     Active Substance: AZITHROMYCIN
     Indication: Haemoglobin C disease

REACTIONS (1)
  - Haemoglobin E disease [Recovered/Resolved]

NARRATIVE: CASE EVENT DATE: 00010101
